FAERS Safety Report 9289042 (Version 4)
Quarter: 2013Q3

REPORT INFORMATION
  Report Type: Spontaneous
  Country: US (occurrence: US)
  Receive Date: 20130514
  Receipt Date: 20130705
  Transmission Date: 20140515
  Serious: No
  Sender: FDA-Public Use
  Company Number: US-PFIZER INC-2013148395

PATIENT
  Age: 73 Year
  Sex: Female
  Weight: 64.4 kg

DRUGS (6)
  1. LYRICA [Suspect]
     Indication: NEURALGIA
     Dosage: 75 MG, 2X/DAY
     Route: 048
     Dates: start: 20130508, end: 20130509
  2. LYRICA [Suspect]
     Dosage: 75 MG, 2X/DAY
     Route: 048
     Dates: start: 20130511, end: 20130513
  3. LYRICA [Suspect]
     Dosage: 75 MG, UNK
  4. LOSARTAN [Concomitant]
     Indication: HYPERTENSION
     Dosage: UNK
  5. SIMVASTATIN [Concomitant]
     Indication: BLOOD CHOLESTEROL INCREASED
     Dosage: UNK
  6. ANASTROZOLE [Concomitant]
     Indication: BREAST CANCER FEMALE
     Dosage: UNK, 1X/DAY

REACTIONS (11)
  - Drug ineffective [Unknown]
  - Gait disturbance [Recovered/Resolved]
  - Neurological symptom [Recovered/Resolved]
  - Muscular weakness [Recovered/Resolved]
  - Asthenia [Recovered/Resolved]
  - Sensation of heaviness [Recovered/Resolved]
  - Dizziness [Recovered/Resolved]
  - Somnolence [Recovered/Resolved]
  - Weight increased [Unknown]
  - Local swelling [Unknown]
  - Joint swelling [Unknown]
